FAERS Safety Report 22160880 (Version 1)
Quarter: 2023Q1

REPORT INFORMATION
  Report Type: Spontaneous
  Country: US (occurrence: None)
  Receive Date: 20230330
  Receipt Date: 20230330
  Transmission Date: 20230417
  Serious: Yes (Death)
  Sender: FDA-Public Use
  Company Number: None

PATIENT
  Sex: Female

DRUGS (16)
  1. GAZYVA [Suspect]
     Active Substance: OBINUTUZUMAB
     Indication: Product used for unknown indication
     Dosage: 100MG/40ML INTRAVENOUS??INFUSE 1000 MG INTRAVENOUSLY EVERY MONTH
     Route: 042
     Dates: start: 20210127
  2. ALLEGRA-D TAB 12 HOUR [Concomitant]
  3. ALPRAZOLAM TAB 0.25MG [Concomitant]
  4. AMLODIPINE [Concomitant]
     Active Substance: AMLODIPINE BESYLATE
  5. ATORVASTATIN [Concomitant]
     Active Substance: ATORVASTATIN
  6. FUROSEMIDE TAB 20MG [Concomitant]
  7. GABAPENTIN CAP 100MG [Concomitant]
  8. GABAPENTIN [Concomitant]
     Active Substance: GABAPENTIN
  9. HYDRALAZINE TAB 50MG [Concomitant]
  10. IMBRUVICA [Concomitant]
     Active Substance: IBRUTINIB
  11. ISOSORB MONO TAB 60MG ER [Concomitant]
  12. LISINOPRIL [Concomitant]
     Active Substance: LISINOPRIL
  13. PNEUMOVAX 23 INJ 25/0.5 [Concomitant]
  14. POT CHLORIDE TAB 10MEQ ER [Concomitant]
  15. SPIRONOLACTONE [Concomitant]
     Active Substance: SPIRONOLACTONE
  16. ZOLEDRONIC ACID [Concomitant]
     Active Substance: ZOLEDRONIC ACID

REACTIONS (1)
  - Death [None]
